FAERS Safety Report 23977151 (Version 1)
Quarter: 2024Q2

REPORT INFORMATION
  Report Type: Spontaneous
  Country: JP (occurrence: JP)
  Receive Date: 20240614
  Receipt Date: 20240614
  Transmission Date: 20240716
  Serious: Yes (Other)
  Sender: FDA-Public Use
  Company Number: JP-NAPPMUNDI-GBR-2024-0117242

PATIENT
  Age: 6 Decade
  Sex: Male

DRUGS (2)
  1. NORSPAN [Suspect]
     Active Substance: BUPRENORPHINE
     Indication: Spinal osteoarthritis
     Dosage: UNK
  2. NORSPAN [Suspect]
     Active Substance: BUPRENORPHINE
     Indication: Pain

REACTIONS (1)
  - Dysuria [Unknown]
